FAERS Safety Report 4359632-1 (Version None)
Quarter: 2004Q2

REPORT INFORMATION
  Report Type: 
  Country: None (occurrence: None)
  Receive Date: 20040514
  Receipt Date: 20040514
  Transmission Date: 20050107
  Serious: Yes (Death)
  Sender: FDA-Public Use
  Company Number: None

PATIENT
  Sex: Male
  Weight: 131.5431 kg

DRUGS (1)
  1. FENTANYL [Suspect]
     Indication: ARTHRALGIA
     Dosage: 75 MGS 72 HOURS PATCH
     Dates: start: 20030701, end: 20031201

REACTIONS (3)
  - ACCIDENTAL OVERDOSE [None]
  - DRUG TOXICITY [None]
  - MEDICATION ERROR [None]
